FAERS Safety Report 17184456 (Version 2)
Quarter: 2019Q4

REPORT INFORMATION
  Report Type: Spontaneous
  Country: US (occurrence: US)
  Receive Date: 20191220
  Receipt Date: 20191227
  Transmission Date: 20200122
  Serious: No
  Sender: FDA-Public Use
  Company Number: US-PFIZER INC-2019549326

PATIENT
  Age: 15 Year
  Sex: Male

DRUGS (2)
  1. GENOTROPIN [Suspect]
     Active Substance: SOMATROPIN
     Indication: BODY HEIGHT BELOW NORMAL
     Dosage: 2.0 MG, ALTERNATE DAY (ALT 2.0 MG AND 2.2MG QOD (ONCE A DAY) X 2 DAYS/WK)
     Dates: start: 20191214, end: 20191214
  2. GENOTROPIN [Suspect]
     Active Substance: SOMATROPIN
     Dosage: 2.2 MG, ALTERNATE DAY (ALT 2.0 MG AND 2.2MG QOD (ONCE A DAY) X 2 DAYS/WK)
     Dates: start: 20191214, end: 20191214

REACTIONS (1)
  - Headache [Unknown]

NARRATIVE: CASE EVENT DATE: 20191214
